FAERS Safety Report 11465250 (Version 1)
Quarter: 2015Q3

REPORT INFORMATION
  Report Type: Spontaneous
  Country: US (occurrence: US)
  Receive Date: 20150907
  Receipt Date: 20150907
  Transmission Date: 20151125
  Serious: Yes (Hospitalization, Other)
  Sender: FDA-Public Use
  Company Number: US-ROCHE-ITM201506IM017614

PATIENT
  Age: 82 Year
  Sex: Male
  Weight: 111.23 kg

DRUGS (1)
  1. ESBRIET [Suspect]
     Active Substance: PIRFENIDONE
     Indication: IDIOPATHIC PULMONARY FIBROSIS
     Route: 048
     Dates: start: 20150520

REACTIONS (12)
  - Diarrhoea [Unknown]
  - Gait disturbance [Unknown]
  - Sputum abnormal [Unknown]
  - Cough [Unknown]
  - Dyspnoea [Unknown]
  - Rhinorrhoea [Unknown]
  - Productive cough [Unknown]
  - Fluid retention [Unknown]
  - Nausea [Unknown]
  - Cardiac failure congestive [Unknown]
  - Asthenia [Unknown]
  - Abdominal discomfort [Unknown]

NARRATIVE: CASE EVENT DATE: 201506
